FAERS Safety Report 7052063-5 (Version None)
Quarter: 2010Q4

REPORT INFORMATION
  Report Type: 
  Country: None (occurrence: None)
  Receive Date: 20101019
  Receipt Date: 20101012
  Transmission Date: 20110411
  Serious: Yes (Death)
  Sender: FDA-Public Use
  Company Number: CN-GENZYME-THYM-1001918

PATIENT
  Age: 29 Year
  Sex: Male

DRUGS (7)
  1. THYMOGLOBULIN [Suspect]
     Indication: BONE MARROW CONDITIONING REGIMEN
     Route: 042
  2. CYCLOPHOSPHAMIDE [Concomitant]
     Indication: BONE MARROW CONDITIONING REGIMEN
  3. SULFAMETHOXAZOLE [Concomitant]
     Indication: INFECTION PROPHYLAXIS
  4. NORFLOXACIN [Concomitant]
     Indication: INFECTION PROPHYLAXIS
  5. ACYCLOVIR SODIUM [Concomitant]
     Indication: INFECTION PROPHYLAXIS
  6. GANCICLOVIR [Concomitant]
     Indication: INFECTION PROPHYLAXIS
  7. ANTIFUNGALS [Concomitant]
     Indication: INFECTION PROPHYLAXIS

REACTIONS (2)
  - EPSTEIN-BARR VIRUS ASSOCIATED LYMPHOPROLIFERATIVE DISORDER [None]
  - PNEUMONIA VIRAL [None]
